FAERS Safety Report 12796997 (Version 2)
Quarter: 2017Q2

REPORT INFORMATION
  Report Type: Report from Study
  Country: ES (occurrence: ES)
  Receive Date: 20160930
  Receipt Date: 20170512
  Transmission Date: 20170830
  Serious: Yes (Death, Other)
  Sender: FDA-Public Use
  Company Number: ES-AMGEN-ESPNI2016132902

PATIENT
  Age: 14 Month
  Sex: Female

DRUGS (14)
  1. OMEPRAZOL [Concomitant]
     Active Substance: OMEPRAZOLE
     Dosage: 5 MG, QD
     Route: 042
  2. ONDANSETRON [Concomitant]
     Active Substance: ONDANSETRON
     Dosage: 1 MG, Q8H
     Route: 042
  3. MIDAZOLAM [Concomitant]
     Active Substance: MIDAZOLAM HYDROCHLORIDE
     Dosage: CONTINUOUS INFUSION
  4. BLINATUMOMAB [Suspect]
     Active Substance: BLINATUMOMAB
     Dosage: 10 MUG/M2, CONTINUOUS
     Route: 042
     Dates: start: 20160823, end: 20160825
  5. METAMIZOL [Concomitant]
     Active Substance: METAMIZOLE SODIUM
     Dosage: 230 MG, Q6H
     Route: 042
  6. LEVETIRACETAM. [Concomitant]
     Active Substance: LEVETIRACETAM
     Dosage: 100 MG, Q12H
     Route: 048
  7. COTRIMOXAZOLE [Concomitant]
     Active Substance: SULFAMETHOXAZOLE\TRIMETHOPRIM
     Dosage: 100 MG, Q12H
     Route: 048
  8. BUSCAPINA [Concomitant]
     Active Substance: BUTYLSCOPOLAMINE BROMIDE
     Dosage: 1.5 MG, Q8H
     Route: 042
  9. DEXAMETASONA [Concomitant]
     Active Substance: DEXAMETHASONE
     Dosage: 1.8 MG, Q12H
     Route: 042
  10. MORPHINE HYDROCHLORIDE [Concomitant]
     Active Substance: MORPHINE HYDROCHLORIDE
     Dosage: CONTINUOUS INFUSION
  11. CEFUROXIMA [Concomitant]
     Dosage: 150 MG, Q12H
     Route: 048
  12. BLINATUMOMAB [Suspect]
     Active Substance: BLINATUMOMAB
     Indication: ACUTE LYMPHOCYTIC LEUKAEMIA
     Dosage: 5 MUG/M2, CONTINUOUS
     Route: 042
     Dates: start: 20160819, end: 20160823
  13. FLUCONAZOLE. [Concomitant]
     Active Substance: FLUCONAZOLE
     Dosage: 40 MG, QD
  14. BLINATUMOMAB [Suspect]
     Active Substance: BLINATUMOMAB
     Dosage: 15 MUG/M2, CONTINUOUS
     Route: 042
     Dates: start: 20160825, end: 20160830

REACTIONS (2)
  - Cardiopulmonary failure [Fatal]
  - Drug ineffective [Unknown]

NARRATIVE: CASE EVENT DATE: 201608
